FAERS Safety Report 7799525-0 (Version None)
Quarter: 2011Q4

REPORT INFORMATION
  Report Type: 
  Country: None (occurrence: None)
  Receive Date: 20111006
  Receipt Date: 20111006
  Transmission Date: 20120403
  Serious: Yes (Other)
  Sender: FDA-Public Use
  Company Number: None

PATIENT
  Sex: Female
  Weight: 97.522 kg

DRUGS (2)
  1. FLUCONAZOLE [Suspect]
     Indication: CANDIDIASIS
     Dosage: 1 PILL
     Route: 048
     Dates: start: 20110119, end: 20110122
  2. FLUCONAZOLE [Concomitant]
     Dosage: 1 PILL
     Dates: start: 20111003, end: 20111003

REACTIONS (6)
  - EYE DISORDER [None]
  - PRODUCT SUBSTITUTION ISSUE [None]
  - PAIN [None]
  - MUSCLE SPASMS [None]
  - PHOTOPHOBIA [None]
  - IMPAIRED DRIVING ABILITY [None]
